FAERS Safety Report 7627294-3 (Version None)
Quarter: 2011Q3

REPORT INFORMATION
  Report Type: 
  Country: None (occurrence: None)
  Receive Date: 20110714
  Receipt Date: 20110628
  Transmission Date: 20111222
  Serious: Yes (Hospitalization)
  Sender: FDA-Public Use
  Company Number: PTU-11-07

PATIENT
  Age: 68 Year
  Sex: Male

DRUGS (2)
  1. CARBIMAZOLE [Concomitant]
  2. PROPYLTHIOURACIL [Suspect]
     Indication: HYPERTHYROIDISM
     Dosage: 200MG/DAY

REACTIONS (3)
  - TINNITUS [None]
  - DEAFNESS [None]
  - DIZZINESS [None]
